FAERS Safety Report 7645872-2 (Version None)
Quarter: 2011Q3

REPORT INFORMATION
  Report Type: 
  Country: None (occurrence: None)
  Receive Date: 20110729
  Receipt Date: 20110725
  Transmission Date: 20111222
  Serious: Yes (Other)
  Sender: FDA-Public Use
  Company Number: US-AMGEN-USASP2011037763

PATIENT
  Age: 52 Year
  Sex: Female

DRUGS (2)
  1. VENOFER [Concomitant]
  2. NPLATE [Suspect]
     Indication: IDIOPATHIC THROMBOCYTOPENIC PURPURA
     Dosage: UNK
     Dates: start: 20090101

REACTIONS (2)
  - BONE PAIN [None]
  - REFUSAL OF TREATMENT BY PATIENT [None]
